FAERS Safety Report 16625141 (Version 1)
Quarter: 2019Q3

REPORT INFORMATION
  Report Type: Spontaneous
  Country: US (occurrence: US)
  Receive Date: 20190611
  Receipt Date: 20190611
  Transmission Date: 20191004
  Serious: Yes (Hospitalization)
  Sender: FDA-Public Use
  Company Number: None

PATIENT
  Sex: Female

DRUGS (1)
  1. VERZENIO [Suspect]
     Active Substance: ABEMACICLIB
     Indication: BREAST CANCER
     Route: 048
     Dates: start: 20190514

REACTIONS (7)
  - Eye swelling [None]
  - Vomiting [None]
  - Diarrhoea [None]
  - Rash [None]
  - Urticaria [None]
  - Swollen tongue [None]
  - Dehydration [None]
